FAERS Safety Report 25369390 (Version 2)
Quarter: 2025Q3

REPORT INFORMATION
  Report Type: Spontaneous
  Country: EU (occurrence: EU)
  Receive Date: 20250528
  Receipt Date: 20250722
  Transmission Date: 20251020
  Serious: Yes (Hospitalization, Other)
  Sender: SANOFI AVENTIS
  Company Number: EU-SA-2025SA150066

PATIENT
  Age: 67 Year
  Sex: Female

DRUGS (7)
  1. DUPIXENT [Suspect]
     Active Substance: DUPILUMAB
     Indication: Nasal polyps
     Route: 065
     Dates: start: 20250330, end: 2025
  2. OMEPRAZOLE [Concomitant]
     Active Substance: OMEPRAZOLE
     Dosage: 20 MG, QD
  3. PLAVIX [Concomitant]
     Active Substance: CLOPIDOGREL BISULFATE
     Dosage: 75 MG, QD
  4. AMLODIPINE [Concomitant]
     Active Substance: AMLODIPINE BESYLATE
     Dosage: 10 MG, QD
  5. ALENDRONATE [Concomitant]
     Active Substance: ALENDRONATE SODIUM
     Dosage: 70 MG, QW
  6. SERC (BETAHISTINE HYDROCHLORIDE) [Concomitant]
     Active Substance: BETAHISTINE HYDROCHLORIDE
     Dosage: 16 MG, Q12H
  7. HALOPERIDOL [Concomitant]
     Active Substance: HALOPERIDOL

REACTIONS (12)
  - Myocardial necrosis marker increased [Recovered/Resolved]
  - Chest pain [Recovered/Resolved]
  - Eosinophilic myocarditis [Unknown]
  - Cerebrovascular accident [Unknown]
  - Eosinophilic granulomatosis with polyangiitis [Recovered/Resolved]
  - Condition aggravated [Recovered/Resolved]
  - Atrial fibrillation [Recovered/Resolved]
  - Ventricular fibrillation [Recovered/Resolved]
  - Tachypnoea [Recovered/Resolved]
  - Pyrexia [Recovered/Resolved]
  - Condition aggravated [Unknown]
  - Intentional product misuse [Unknown]

NARRATIVE: CASE EVENT DATE: 20250101
